FAERS Safety Report 6699535-0 (Version None)
Quarter: 2010Q2

REPORT INFORMATION
  Report Type: 
  Country: None (occurrence: None)
  Receive Date: 20100427
  Receipt Date: 20100427
  Transmission Date: 20101027
  Serious: Yes (Other)
  Sender: FDA-Public Use
  Company Number: None

PATIENT
  Age: 77 Year
  Sex: Female
  Weight: 72.5755 kg

DRUGS (7)
  1. EXFORGE [Suspect]
     Indication: HYPERTENSION
     Dosage: 2 TABLETS TWICE A DAY
  2. HYDRALAZINE HCL [Suspect]
     Indication: HYPERTENSION
     Dosage: 3 TABLETS THREE TIMES A DAY
  3. TOPROL-XL [Concomitant]
  4. DIOVAN [Concomitant]
  5. CLONIDINE [Concomitant]
  6. LIPIDOR [Concomitant]
  7. ASPIRIN [Concomitant]

REACTIONS (10)
  - BLOOD PRESSURE INCREASED [None]
  - BURNING SENSATION [None]
  - DYSPNOEA [None]
  - HYPOAESTHESIA [None]
  - MUSCULOSKELETAL PAIN [None]
  - NASAL OEDEMA [None]
  - OEDEMA MOUTH [None]
  - RASH ERYTHEMATOUS [None]
  - SWELLING FACE [None]
  - TONGUE OEDEMA [None]
